FAERS Safety Report 20560988 (Version 7)
Quarter: 2024Q4

REPORT INFORMATION
  Report Type: Report from Study
  Country: US (occurrence: US)
  Receive Date: 20220307
  Receipt Date: 20241021
  Transmission Date: 20250115
  Serious: Yes (Other)
  Sender: TAKEDA
  Company Number: US-TAKEDA-US202020544

PATIENT
  Age: 77 Year
  Sex: Female

DRUGS (2)
  1. HUMAN IMMUNOGLOBULIN G\HYALURONIDASE RECOMBINANT HUMAN [Suspect]
     Active Substance: HUMAN IMMUNOGLOBULIN G\HYALURONIDASE (HUMAN RECOMBINANT)
     Indication: Primary immunodeficiency syndrome
     Dosage: 6 GRAM
     Route: 065
  2. HUMAN IMMUNOGLOBULIN G\HYALURONIDASE RECOMBINANT HUMAN [Suspect]
     Active Substance: HUMAN IMMUNOGLOBULIN G\HYALURONIDASE (HUMAN RECOMBINANT)
     Dosage: UNK
     Route: 058

REACTIONS (16)
  - Pseudomonas infection [Unknown]
  - Atrial fibrillation [Unknown]
  - Bradycardia [Unknown]
  - Infusion site scar [Unknown]
  - Infusion site haemorrhage [Unknown]
  - Hearing aid user [Unknown]
  - Nasopharyngitis [Unknown]
  - Chills [Unknown]
  - Urinary tract infection [Unknown]
  - Pain [Unknown]
  - Gastrooesophageal reflux disease [Unknown]
  - Pulmonary mass [Unknown]
  - Sleep apnoea syndrome [Unknown]
  - Anaemia [Unknown]
  - Tachycardia [Unknown]
  - Dyspnoea [Unknown]

NARRATIVE: CASE EVENT DATE: 20240130
